FAERS Safety Report 6939250-9 (Version None)
Quarter: 2010Q3

REPORT INFORMATION
  Report Type: 
  Country: None (occurrence: None)
  Receive Date: 20100824
  Receipt Date: 20100817
  Transmission Date: 20110219
  Serious: Yes (Hospitalization)
  Sender: FDA-Public Use
  Company Number: GB-CEPHALON-2010003918

PATIENT
  Sex: Female
  Weight: 66 kg

DRUGS (11)
  1. TREANDA [Suspect]
     Route: 042
     Dates: start: 20100608, end: 20100803
  2. RITUXIMAB [Suspect]
     Route: 042
     Dates: start: 20100608, end: 20100803
  3. AMLODIPINE [Concomitant]
  4. CAPTOPRIL [Concomitant]
     Dates: start: 20090101
  5. ATENOLOL [Concomitant]
  6. ACYCLOVIR SODIUM [Concomitant]
     Dates: start: 20100608
  7. COTRIM [Concomitant]
     Dates: start: 20100619
  8. LANTUS [Concomitant]
  9. HUMALOG [Concomitant]
  10. DOMPERIDONE [Concomitant]
     Dates: start: 20100608
  11. METFORMIN [Concomitant]
     Dates: end: 20100728

REACTIONS (5)
  - ANORECTAL DISCOMFORT [None]
  - CHOLESTASIS [None]
  - CONSTIPATION [None]
  - DEHYDRATION [None]
  - LIVER FUNCTION TEST ABNORMAL [None]
